FAERS Safety Report 5484033-2 (Version None)
Quarter: 2007Q4

REPORT INFORMATION
  Report Type: 
  Country: None (occurrence: None)
  Receive Date: 20071012
  Receipt Date: 20071002
  Transmission Date: 20080405
  Serious: Yes (Hospitalization)
  Sender: FDA-Public Use
  Company Number: AR-ROCHE-522827

PATIENT
  Age: 24 Month
  Sex: Male

DRUGS (3)
  1. ACANTEX [Suspect]
     Dosage: FREQUENCY REPORTED AS ONCE
     Route: 030
     Dates: start: 20070920, end: 20070920
  2. IBUPROFEN [Concomitant]
  3. 1 CONCOMITANT DRUG [Concomitant]
     Dosage: DRUG REPORTED AS SINGULARIS

REACTIONS (6)
  - BLINDNESS [None]
  - COLD SWEAT [None]
  - DIZZINESS [None]
  - MUSCULOSKELETAL STIFFNESS [None]
  - MUTISM [None]
  - TREMOR [None]
